FAERS Safety Report 9890478 (Version 1)
Quarter: 2014Q1

REPORT INFORMATION
  Report Type: Spontaneous
  Country: US (occurrence: None)
  Receive Date: 20140210
  Receipt Date: 20140210
  Transmission Date: 20141002
  Serious: Yes (Hospitalization)
  Sender: FDA-Public Use
  Company Number: None

PATIENT
  Age: 86 Year
  Sex: Male

DRUGS (1)
  1. DONEPEZIL [Suspect]
     Indication: MEMORY IMPAIRMENT
     Route: 048
     Dates: start: 20130909, end: 20130927

REACTIONS (1)
  - Dermatitis exfoliative [None]
